FAERS Safety Report 15928589 (Version 1)
Quarter: 2019Q1

REPORT INFORMATION
  Report Type: Spontaneous
  Country: CN (occurrence: CN)
  Receive Date: 20190206
  Receipt Date: 20190206
  Transmission Date: 20190417
  Serious: Yes (Hospitalization)
  Sender: FDA-Public Use
  Company Number: CN-MYLANLABS-2019M1011101

PATIENT
  Age: 68 Year
  Sex: Female
  Weight: 55 kg

DRUGS (19)
  1. TEICOPLANIN [Suspect]
     Active Substance: TEICOPLANIN
     Indication: PANCREATITIS ACUTE
     Dosage: STARTED ON EMERGENCY INTENSIVE CARE UNIT DAY 80
     Route: 041
  2. SOMATOSTATIN [Concomitant]
     Active Substance: SOMATOSTATIN
     Indication: PRODUCT USED FOR UNKNOWN INDICATION
     Dosage: AT THE RATE OF 3 MG/HOUR; STARTED ON EMERGENCY INTENSIVE CARE UNIT DAY 1
     Route: 041
  3. FLUCONAZOLE. [Concomitant]
     Active Substance: FLUCONAZOLE
     Indication: ANTI-INFECTIVE THERAPY
     Dosage: IV DRIP; STARTED ON EMERGENCY INTENSIVE CARE UNIT DAY 73
     Route: 041
  4. CEFTAZIDIME. [Concomitant]
     Active Substance: CEFTAZIDIME
     Indication: KLEBSIELLA INFECTION
     Dosage: IV DRIP; STARTED ON EMERGENCY INTENSIVE CARE UNIT DAY 77
     Route: 041
  5. VORICONAZOLE. [Concomitant]
     Active Substance: VORICONAZOLE
     Indication: ANTI-INFECTIVE THERAPY
     Dosage: IV DRIP; STARTED ON EMERGENCY INTENSIVE CARE UNIT DAY 77
     Route: 041
  6. CASPOFUNGIN [Concomitant]
     Active Substance: CASPOFUNGIN
     Indication: ANTI-INFECTIVE THERAPY
     Dosage: IV DRIP; GIVEN DURING EMERGENCY INTENSIVE CARE UNIT DAYS 18-52 AND RESTARTED ON DAY 80
     Route: 041
  7. AMIKACIN. [Concomitant]
     Active Substance: AMIKACIN
     Indication: ACINETOBACTER INFECTION
     Dosage: STARTED ON EMERGENCY INTENSIVE CARE UNIT DAY 77
     Route: 050
  8. VANCOMYCIN [Suspect]
     Active Substance: VANCOMYCIN
     Indication: PANCREATITIS ACUTE
     Dosage: STARTED ON EMERGENCY INTENSIVE CARE UNIT DAY 21
     Route: 041
  9. GLUTATHIONE [Concomitant]
     Active Substance: GLUTATHIONE
     Indication: PRODUCT USED FOR UNKNOWN INDICATION
     Dosage: IV DRIP; STARTED ON EMERGENCY INTENSIVE CARE UNIT DAY 1; REDUCED
     Route: 041
  10. VITAMIN C ACID [Concomitant]
     Active Substance: ASCORBIC ACID
     Indication: PRODUCT USED FOR UNKNOWN INDICATION
     Dosage: STARTED ON EMERGENCY INTENSIVE CARE UNIT DAY 1
     Route: 041
  11. TIGECYCLINE. [Concomitant]
     Active Substance: TIGECYCLINE
     Indication: KLEBSIELLA INFECTION
     Dosage: IV DRIP; GIVEN DURING EMERGENCY INTENSIVE CARE UNIT DAYS 18-52 AND RESTARTED ON DAY 77
     Route: 041
  12. AMIKACIN. [Concomitant]
     Active Substance: AMIKACIN
     Indication: KLEBSIELLA INFECTION
     Dosage: STARTED ON EMERGENCY INTENSIVE CARE UNIT DAY 80
     Route: 050
  13. VANCOMYCIN [Suspect]
     Active Substance: VANCOMYCIN
     Indication: ENTEROCOCCAL INFECTION
     Dosage: STARTED ON EMERGENCY INTENSIVE CARE UNIT DAY 7
     Route: 041
  14. ULINASTATIN [Concomitant]
     Active Substance: ULINASTATIN
     Indication: PRODUCT USED FOR UNKNOWN INDICATION
     Dosage: 300000 U AT THE RATE OF 100,000 U/HOUR; STARTED ON EMERGENCY INTENSIVE CARE UNIT DAY 2
     Route: 041
  15. MEROPENEM. [Concomitant]
     Active Substance: MEROPENEM
     Indication: ANTI-INFECTIVE THERAPY
     Dosage: IV DRIP; STARTED ON EMERGENCY INTENSIVE CARE UNIT DAY 4
     Route: 041
  16. CEFEPIME [Concomitant]
     Active Substance: CEFEPIME HYDROCHLORIDE
     Indication: ANTI-INFECTIVE THERAPY
     Dosage: IV DRIP; STARTED ON EMERGENCY INTENSIVE CARE UNIT DAY 63
     Route: 041
  17. MOXIFLOXACIN. [Concomitant]
     Active Substance: MOXIFLOXACIN
     Indication: ANTI-INFECTIVE THERAPY
     Dosage: IV DRIP; STARTED ON EMERGENCY INTENSIVE CARE UNIT DAY 73
     Route: 041
  18. LINEZOLID. [Concomitant]
     Active Substance: LINEZOLID
     Indication: ANTI-INFECTIVE THERAPY
     Dosage: IV DRIP; STARTED ON EMERGENCY INTENSIVE CARE UNIT DAY 73
     Route: 041
  19. OMEPRAZOLE. [Concomitant]
     Active Substance: OMEPRAZOLE
     Indication: PRODUCT USED FOR UNKNOWN INDICATION
     Dosage: IV DRIP; STARTED ON EMERGENCY INTENSIVE CARE UNIT DAY 1
     Route: 041

REACTIONS (3)
  - Erythema [Recovered/Resolved]
  - Skin reaction [Recovered/Resolved]
  - Therapeutic product cross-reactivity [Recovering/Resolving]
